FAERS Safety Report 24266589 (Version 1)
Quarter: 2024Q3

REPORT INFORMATION
  Report Type: Other
  Country: US (occurrence: US)
  Receive Date: 20240830
  Receipt Date: 20240830
  Transmission Date: 20241017
  Serious: Yes (Death)
  Sender: ALVOGEN
  Company Number: US-ALVOGEN-2024095353

PATIENT
  Age: 20 Year
  Sex: Male

DRUGS (6)
  1. FENTANYL [Suspect]
     Active Substance: FENTANYL\FENTANYL CITRATE
     Indication: Drug abuse
  2. NICOTINE [Suspect]
     Active Substance: NICOTINE
     Indication: Drug abuse
  3. ECGONINE METHYL ESTER [Suspect]
     Active Substance: ECGONINE METHYL ESTER
     Indication: Drug abuse
  4. CODEINE [Suspect]
     Active Substance: CODEINE
     Indication: Drug abuse
  5. COCAINE [Suspect]
     Active Substance: COCAINE
     Indication: Drug abuse
  6. CAFFEINE [Suspect]
     Active Substance: CAFFEINE
     Indication: Drug abuse

REACTIONS (4)
  - Toxicity to various agents [Fatal]
  - Accidental death [Fatal]
  - Loss of consciousness [Fatal]
  - Drug abuse [Fatal]
